FAERS Safety Report 8156146-8 (Version None)
Quarter: 2012Q1

REPORT INFORMATION
  Report Type: 
  Country: None (occurrence: None)
  Receive Date: 20120222
  Receipt Date: 20120213
  Transmission Date: 20120608
  Serious: Yes (Hospitalization)
  Sender: FDA-Public Use
  Company Number: JP-TEVA-323607ISR

PATIENT
  Sex: Female
  Weight: 59 kg

DRUGS (19)
  1. BENDAMUSTINE [Suspect]
     Dosage: 90 MG/M2;
     Route: 042
     Dates: start: 20110509, end: 20110510
  2. SULFAMETHOXAZOLE + TRIMETHOPRIM [Concomitant]
     Indication: PROPHYLAXIS
  3. MAGNESIUM OXIDE [Concomitant]
     Indication: PROPHYLAXIS
     Dosage: 1500 MILLIGRAM;
  4. ONDANSETRON HYDROCHLORIDE [Concomitant]
     Dosage: 3 MILLIGRAM;
     Dates: start: 20110629, end: 20110630
  5. BENDAMUSTINE [Suspect]
     Indication: B-CELL LYMPHOMA
     Dosage: 120 MG/M2;
     Route: 042
     Dates: start: 20110128
  6. METOCLOPRAMIDE [Concomitant]
     Indication: PROPHYLAXIS
     Dates: start: 20110205, end: 20110222
  7. BENDAMUSTINE [Suspect]
     Dosage: 90 MG/M2;
     Route: 042
     Dates: start: 20110530, end: 20110531
  8. FAMOTIDINE [Concomitant]
     Indication: PROPHYLAXIS
     Dosage: 20 MILLIGRAM;
  9. BENDAMUSTINE [Suspect]
     Dosage: 120 MG/M2;
     Route: 042
     Dates: start: 20110218, end: 20110219
  10. BENDAMUSTINE [Suspect]
     Dosage: 90 MG/M2;
     Route: 042
     Dates: start: 20110330, end: 20110331
  11. REBAMIPIDE [Concomitant]
     Indication: PROPHYLAXIS
     Dosage: 300 MILLIGRAM;
  12. ONDANSETRON HYDROCHLORIDE [Concomitant]
     Dosage: 3 MILLIGRAM;
     Dates: start: 20110509, end: 20110510
  13. BENDAMUSTINE [Suspect]
     Dosage: 90 MG/M2;
     Route: 042
     Dates: start: 20110530, end: 20110531
  14. ACYCLOVIR [Concomitant]
     Indication: PROPHYLAXIS
     Dosage: 200 MILLIGRAM;
  15. POVIDONE IODINE [Concomitant]
     Indication: PROPHYLAXIS
     Dates: end: 20110630
  16. ONDANSETRON HYDROCHLORIDE [Concomitant]
     Indication: PROPHYLAXIS
     Dosage: 3 MILLIGRAM;
     Dates: start: 20110122, end: 20110129
  17. ONDANSETRON HYDROCHLORIDE [Concomitant]
     Dosage: 3 MILLIGRAM;
     Dates: start: 20110218, end: 20110219
  18. ONDANSETRON HYDROCHLORIDE [Concomitant]
     Dosage: 3 MILLIGRAM;
     Dates: start: 20110330, end: 20110331
  19. ONDANSETRON HYDROCHLORIDE [Concomitant]
     Dosage: 3 MILLIGRAM;
     Dates: start: 20110530, end: 20110531

REACTIONS (3)
  - NEUTROPHIL COUNT DECREASED [None]
  - AMYLASE INCREASED [None]
  - LYMPHOCYTE COUNT DECREASED [None]
